FAERS Safety Report 10263019 (Version 1)
Quarter: 2014Q2

REPORT INFORMATION
  Report Type: Report from Study
  Country: US (occurrence: US)
  Receive Date: 20140626
  Receipt Date: 20140626
  Transmission Date: 20141212
  Serious: Yes (Other)
  Sender: FDA-Public Use
  Company Number: US-MYLANLABS-2013S1026756

PATIENT
  Age: 36 Year
  Sex: Male

DRUGS (4)
  1. CLOZAPINE TABLETS [Suspect]
     Route: 048
     Dates: start: 20130930, end: 2013
  2. QUETIAPINE [Concomitant]
     Route: 048
     Dates: start: 201309, end: 201310
  3. FLUOXETINE [Concomitant]
     Route: 048
     Dates: start: 201309, end: 201310
  4. LAMOTRIGINE [Concomitant]
     Route: 048
     Dates: start: 201309, end: 201310

REACTIONS (1)
  - Granulocytopenia [Recovered/Resolved]
